FAERS Safety Report 8044560 (Version 4)
Quarter: 2014Q3

REPORT INFORMATION
  Report Type: Spontaneous
  Country: TH (occurrence: TH)
  Receive Date: 20110720
  Receipt Date: 20140729
  Transmission Date: 20150326
  Serious: Yes (Other)
  Sender: FDA-Public Use
  Company Number: TH-RANBAXY-2011RR-45896

PATIENT
  Age: 35 Year
  Sex: Female

DRUGS (1)
  1. METFORMIN [Suspect]
     Active Substance: METFORMIN HYDROCHLORIDE
     Indication: DIABETES MELLITUS
     Dosage: 1000 MG/DAY
     Route: 065

REACTIONS (2)
  - Vasculitis [Recovered/Resolved]
  - Palpable purpura [Recovered/Resolved]
